FAERS Safety Report 8732157 (Version 2)
Quarter: 2012Q4

REPORT INFORMATION
  Report Type: 
  Country: US (occurrence: US)
  Receive Date: 20120820
  Receipt Date: 20121019
  Transmission Date: 20130627
  Serious: Yes (Other)
  Sender: FDA-Public Use
  Company Number: US-ASTRAZENECA-2011SE18714

PATIENT
  Age: 38 Year
  Sex: Female
  Weight: 90.7 kg

DRUGS (11)
  1. SEROQUEL [Suspect]
     Route: 048
     Dates: start: 200812
  2. SEROQUEL [Suspect]
     Route: 048
     Dates: start: 200812
  3. PRILOSEC [Suspect]
     Route: 048
     Dates: start: 2005
  4. CLONAZEPAM [Concomitant]
  5. FAMCICLOVIR [Concomitant]
  6. PROMETHAZINE [Concomitant]
  7. BUPROPION [Concomitant]
  8. GABAPENTIN [Concomitant]
  9. CELEXA [Concomitant]
  10. CYCLOBENZAPRINE [Concomitant]
  11. LAMOTRIGINE [Concomitant]

REACTIONS (6)
  - Functional gastrointestinal disorder [Unknown]
  - Attention deficit/hyperactivity disorder [Unknown]
  - Bipolar disorder [Unknown]
  - Cystitis [Unknown]
  - Malaise [Unknown]
  - Panic attack [Unknown]
